FAERS Safety Report 9984732 (Version 1)
Quarter: 2014Q1

REPORT INFORMATION
  Report Type: Spontaneous
  Country: US (occurrence: US)
  Receive Date: 20140307
  Receipt Date: 20140307
  Transmission Date: 20141002
  Serious: Yes (Death, Other)
  Sender: FDA-Public Use
  Company Number: PHHY2014US024912

PATIENT
  Age: 68 Year
  Sex: Female

DRUGS (4)
  1. TEMOZOLOMIDE [Suspect]
     Indication: CHEMOTHERAPY
     Dosage: 150 MG/M2, UNK
     Route: 048
  2. CARBOPLATIN [Suspect]
     Indication: SMALL CELL LUNG CANCER
  3. ETOPOSIDE [Suspect]
     Indication: SMALL CELL LUNG CANCER
  4. ETOPOSIDE [Suspect]
     Indication: CHEMOTHERAPY
     Dosage: 100 MG/M2, UNK
     Route: 048

REACTIONS (6)
  - Death [Fatal]
  - Bone marrow failure [Unknown]
  - Leukopenia [Unknown]
  - Lymphopenia [Unknown]
  - Fatigue [Unknown]
  - Metastases to central nervous system [Unknown]
